FAERS Safety Report 5492845-4 (Version None)
Quarter: 2007Q4

REPORT INFORMATION
  Report Type: 
  Country: None (occurrence: None)
  Receive Date: 20071023
  Receipt Date: 20061004
  Transmission Date: 20080405
  Serious: Yes (Other)
  Sender: FDA-Public Use
  Company Number: US-BRISTOL-MYERS SQUIBB COMPANY-13560933

PATIENT
  Age: 57 Year
  Sex: Female

DRUGS (8)
  1. BUSPAR [Suspect]
     Indication: DEPRESSION
     Route: 048
     Dates: start: 20020101, end: 20060601
  2. KEPPRA [Suspect]
     Indication: CONVULSION
     Route: 048
     Dates: start: 20060401
  3. WELLBUTRIN [Suspect]
     Indication: DEPRESSION
     Route: 048
     Dates: start: 20020101, end: 20060401
  4. EFFEXOR [Suspect]
     Indication: DEPRESSION
     Route: 048
     Dates: start: 20020101, end: 20060601
  5. FLUOXETINE [Suspect]
     Indication: DEPRESSION
     Dates: start: 20020101, end: 20060601
  6. SYNTHROID [Concomitant]
     Indication: HYPOTHYROIDISM
     Dates: start: 19860101
  7. AEROBID [Concomitant]
     Indication: ASTHMA
     Route: 045
     Dates: start: 19860101
  8. ALBUTEROL [Concomitant]
     Indication: ASTHMA
     Route: 045
     Dates: start: 19860101

REACTIONS (2)
  - CONVULSION [None]
  - INSOMNIA [None]
